FAERS Safety Report 20179380 (Version 2)
Quarter: 2022Q1

REPORT INFORMATION
  Report Type: Spontaneous
  Country: GB (occurrence: GB)
  Receive Date: 20211214
  Receipt Date: 20220302
  Transmission Date: 20220424
  Serious: Yes (Other)
  Sender: FDA-Public Use
  Company Number: None

PATIENT
  Age: 36 Year
  Sex: Male
  Weight: 80 kg

DRUGS (1)
  1. MINOXIDIL [Suspect]
     Active Substance: MINOXIDIL
     Indication: Alopecia
     Route: 065
     Dates: start: 20200801, end: 20201120

REACTIONS (3)
  - Anxiety [Recovered/Resolved]
  - Insomnia [Unknown]
  - Mood swings [Unknown]

NARRATIVE: CASE EVENT DATE: 20200801
